FAERS Safety Report 11128646 (Version 2)
Quarter: 2015Q4

REPORT INFORMATION
  Report Type: Spontaneous
  Country: US (occurrence: US)
  Receive Date: 20150521
  Receipt Date: 20151013
  Transmission Date: 20160304
  Serious: Yes (Other)
  Sender: FDA-Public Use
  Company Number: US-PFIZER INC-2015172002

PATIENT
  Age: 84 Year
  Sex: Female

DRUGS (8)
  1. OMEPRAZOLE. [Concomitant]
     Active Substance: OMEPRAZOLE
     Dosage: 40 MG, 2X/DAY
  2. DIOVAN HCT [Concomitant]
     Active Substance: HYDROCHLOROTHIAZIDE\VALSARTAN
     Dosage: 1 DF, UNK
     Route: 048
  3. ZYRTEC [Concomitant]
     Active Substance: CETIRIZINE HYDROCHLORIDE
     Dosage: 10 MG, DAILY
  4. AROMASIN [Suspect]
     Active Substance: EXEMESTANE
     Indication: BREAST CANCER
     Dosage: 25 MG, 1X/DAY
  5. SINGULAIR [Concomitant]
     Active Substance: MONTELUKAST SODIUM
     Dosage: 10 MG, UNK
     Route: 048
  6. SYMBICORT [Concomitant]
     Active Substance: BUDESONIDE\FORMOTEROL FUMARATE DIHYDRATE
     Dosage: 2 DF, 2X/DAY
  7. PRADAXA [Concomitant]
     Active Substance: DABIGATRAN ETEXILATE MESYLATE
     Dosage: 150 MG, 2X/DAY
     Dates: end: 20141021
  8. FLONASE [Concomitant]
     Active Substance: FLUTICASONE PROPIONATE
     Dosage: 50 MG, 2X/DAY
     Route: 045

REACTIONS (1)
  - Back disorder [Unknown]
